FAERS Safety Report 9128309 (Version 1)
Quarter: 2013Q1

REPORT INFORMATION
  Report Type: Spontaneous
  Country: BR (occurrence: BR)
  Receive Date: 20130228
  Receipt Date: 20130228
  Transmission Date: 20140127
  Serious: Yes (Other)
  Sender: FDA-Public Use
  Company Number: BR-BRISTOL-MYERS SQUIBB COMPANY-17412263

PATIENT
  Age: 63 Year
  Sex: Male

DRUGS (2)
  1. ONGLYZA TABS 5 MG [Suspect]
     Indication: DIABETES MELLITUS
     Route: 048
  2. GLIFAGE [Suspect]
     Indication: DIABETES MELLITUS

REACTIONS (3)
  - Benign prostatic hyperplasia [Unknown]
  - Cardiac disorder [Unknown]
  - Syncope [Unknown]
